FAERS Safety Report 21804662 (Version 1)
Quarter: 2023Q1

REPORT INFORMATION
  Report Type: Spontaneous
  Country: US (occurrence: US)
  Receive Date: 20230102
  Receipt Date: 20230102
  Transmission Date: 20230418
  Serious: Yes (Hospitalization, Other)
  Sender: FDA-Public Use
  Company Number: US-ALEMBIC PHARMACUETICALS LIMITED-2022SCAL000574

PATIENT

DRUGS (3)
  1. CYCLOPHOSPHAMIDE [Suspect]
     Active Substance: CYCLOPHOSPHAMIDE
     Indication: Lymphodepletion
     Dosage: UNK
     Route: 065
  2. FLUDARABINE [Suspect]
     Active Substance: FLUDARABINE PHOSPHATE
     Indication: Lymphodepletion
     Dosage: UNK
     Route: 065
  3. TISAGENLECLEUCEL [Suspect]
     Active Substance: TISAGENLECLEUCEL
     Indication: Lymphocyte adoptive therapy
     Dosage: UNK
     Route: 065

REACTIONS (11)
  - Neurotoxicity [Recovering/Resolving]
  - Adenovirus infection [Recovering/Resolving]
  - Colitis [Recovering/Resolving]
  - Haemophagocytic lymphohistiocytosis [Recovering/Resolving]
  - Cytokine release syndrome [Recovering/Resolving]
  - Haematochezia [Recovering/Resolving]
  - Hypertransaminasaemia [Recovering/Resolving]
  - Hyperferritinaemia [Recovering/Resolving]
  - Coagulopathy [Recovering/Resolving]
  - Abdominal pain [Recovering/Resolving]
  - Rectal tenesmus [Recovering/Resolving]
